FAERS Safety Report 18107156 (Version 1)
Quarter: 2020Q3

REPORT INFORMATION
  Report Type: Spontaneous
  Country: US (occurrence: US)
  Receive Date: 20200803
  Receipt Date: 20200803
  Transmission Date: 20201103
  Serious: Yes (Death, Other)
  Sender: FDA-Public Use
  Company Number: US-PURDUE-USA-2020-0159310

PATIENT
  Age: 70 Year
  Sex: Female

DRUGS (1)
  1. OXYCONTIN [Suspect]
     Active Substance: OXYCODONE HYDROCHLORIDE
     Indication: PRODUCT USED FOR UNKNOWN INDICATION
     Route: 048

REACTIONS (15)
  - Road traffic accident [Unknown]
  - Renal failure [Unknown]
  - Cardiac disorder [Unknown]
  - Cardiac failure congestive [Unknown]
  - Neck pain [Unknown]
  - Joint dislocation [Unknown]
  - Fall [Unknown]
  - Back pain [Unknown]
  - Arthralgia [Unknown]
  - Overdose [Unknown]
  - Death [Fatal]
  - Drug dependence [Unknown]
  - Cerebrovascular accident [Unknown]
  - Multiple congenital abnormalities [Unknown]
  - Loss of personal independence in daily activities [Unknown]

NARRATIVE: CASE EVENT DATE: 2013
